FAERS Safety Report 7195011-X (Version None)
Quarter: 2010Q4

REPORT INFORMATION
  Report Type: 
  Country: None (occurrence: None)
  Receive Date: 20101223
  Receipt Date: 20100922
  Transmission Date: 20110411
  Serious: No
  Sender: FDA-Public Use
  Company Number: US-AMGEN-TCS440296

PATIENT

DRUGS (1)
  1. ENBREL [Suspect]
     Indication: RHEUMATOID ARTHRITIS
     Dosage: 50 MG, QWK
     Route: 058
     Dates: end: 20100913

REACTIONS (12)
  - DRUG INEFFECTIVE [None]
  - HOT FLUSH [None]
  - HYPERHIDROSIS [None]
  - INCREASED UPPER AIRWAY SECRETION [None]
  - INFLUENZA [None]
  - INJECTION SITE HAEMATOMA [None]
  - PAPULE [None]
  - RASH PRURITIC [None]
  - SKIN EXFOLIATION [None]
  - SKIN ULCER [None]
  - SNEEZING [None]
  - SWOLLEN TONGUE [None]
